FAERS Safety Report 4630453-5 (Version None)
Quarter: 2005Q2

REPORT INFORMATION
  Report Type: 
  Country: None (occurrence: None)
  Receive Date: 20050406
  Receipt Date: 20050318
  Transmission Date: 20051028
  Serious: Yes (Other)
  Sender: FDA-Public Use
  Company Number: USA050392238

PATIENT
  Age: 78 Year
  Sex: Female
  Weight: 63 kg

DRUGS (8)
  1. FORTEO [Suspect]
     Indication: OSTEOPOROSIS
     Dosage: 800 UG
     Dates: start: 20050320, end: 20050302
  2. VERAPAMIL [Concomitant]
  3. ALBUTEROL [Concomitant]
  4. ATROVENT [Concomitant]
  5. PRILOSEC (OMEPRAZOLE RATIOPHARM) [Concomitant]
  6. DETROL LA (TOLTERODIE L-TARTRATE) [Concomitant]
  7. ACETYLSALICYLIC ACID SRT [Concomitant]
  8. FORADIL [Concomitant]

REACTIONS (7)
  - BLOOD CREATININE INCREASED [None]
  - BLOOD UREA INCREASED [None]
  - CHRONIC OBSTRUCTIVE AIRWAYS DISEASE EXACERBATED [None]
  - DYSPEPSIA [None]
  - MEDICATION ERROR [None]
  - OVERDOSE [None]
  - PNEUMONIA [None]
